FAERS Safety Report 5838276-6 (Version None)
Quarter: 2008Q3

REPORT INFORMATION
  Report Type: 
  Country: None (occurrence: None)
  Receive Date: 20080808
  Receipt Date: 20080805
  Transmission Date: 20090109
  Serious: Yes (Death)
  Sender: FDA-Public Use
  Company Number: DE-AVENTIS-200812125DE

PATIENT
  Age: 73 Year
  Sex: Male

DRUGS (2)
  1. ARAVA [Suspect]
     Indication: RHEUMATOID ARTHRITIS
     Dosage: DOSE: NOT REPORTED
     Route: 048
     Dates: start: 20020723, end: 20030601
  2. METHOTREXATE [Concomitant]
     Indication: RHEUMATOID ARTHRITIS
     Route: 048
     Dates: start: 20020723, end: 20030601

REACTIONS (3)
  - JAUNDICE CHOLESTATIC [None]
  - MULTI-ORGAN FAILURE [None]
  - PANCREATIC CARCINOMA [None]
